FAERS Safety Report 14661552 (Version 7)
Quarter: 2020Q3

REPORT INFORMATION
  Report Type: Spontaneous
  Country: US (occurrence: US)
  Receive Date: 20180320
  Receipt Date: 20200824
  Transmission Date: 20201102
  Serious: No
  Sender: FDA-Public Use
  Company Number: US-ACTELION-A-NJ2018-169368

PATIENT
  Age: 48 Year
  Sex: Male
  Weight: 93.88 kg

DRUGS (11)
  1. UPTRAVI [Suspect]
     Active Substance: SELEXIPAG
     Dosage: 1600 MCG, QD AM
     Route: 048
  2. OPSUMIT [Suspect]
     Active Substance: MACITENTAN
     Indication: PULMONARY ARTERIAL HYPERTENSION
     Dosage: 10 MG, QD
     Route: 048
     Dates: start: 201801
  3. ADCIRCA [Suspect]
     Active Substance: TADALAFIL
     Indication: PULMONARY ARTERIAL HYPERTENSION
     Dosage: UNK
     Route: 065
     Dates: start: 201801
  4. ALPRAZOLAM. [Concomitant]
     Active Substance: ALPRAZOLAM
     Dosage: UNK
  5. OPSUMIT [Suspect]
     Active Substance: MACITENTAN
     Dosage: 10 MG, QD
     Route: 048
  6. LASIX [Concomitant]
     Active Substance: FUROSEMIDE
     Dosage: UNK
  7. UPTRAVI [Suspect]
     Active Substance: SELEXIPAG
     Indication: PULMONARY ARTERIAL HYPERTENSION
     Dosage: 1800 MCG, BID
     Route: 048
  8. METOPROLOL. [Concomitant]
     Active Substance: METOPROLOL
  9. LOSARTAN. [Concomitant]
     Active Substance: LOSARTAN
     Dosage: UNK
  10. UPTRAVI [Suspect]
     Active Substance: SELEXIPAG
     Dosage: 1600 MCG QAM, 200 MCG QPM
     Route: 048
  11. ASPIRIN. [Concomitant]
     Active Substance: ASPIRIN
     Dosage: UNK, QD

REACTIONS (15)
  - Illness [Unknown]
  - Memory impairment [Unknown]
  - Nausea [Unknown]
  - Prescribed overdose [Unknown]
  - Constipation [Unknown]
  - Medication error [Unknown]
  - Bowel movement irregularity [Unknown]
  - Influenza [Unknown]
  - Pneumonia [Unknown]
  - Myalgia [Unknown]
  - Headache [Unknown]
  - Dehydration [Unknown]
  - Influenza like illness [Recovered/Resolved]
  - Product dose omission issue [Unknown]
  - Road traffic accident [Unknown]

NARRATIVE: CASE EVENT DATE: 201801
